FAERS Safety Report 7736265-8 (Version None)
Quarter: 2011Q3

REPORT INFORMATION
  Report Type: 
  Country: None (occurrence: None)
  Receive Date: 20110908
  Receipt Date: 20110901
  Transmission Date: 20111222
  Serious: Yes (Other)
  Sender: FDA-Public Use
  Company Number: US-BAYER-2011-081879

PATIENT
  Sex: Female

DRUGS (2)
  1. DROSPIRENONE AND ETHINYL ESTRADIOL [Suspect]
     Dosage: UNK
     Dates: start: 20041001
  2. YASMIN [Suspect]
     Dosage: UNK
     Dates: start: 20041001

REACTIONS (8)
  - DEPRESSION [None]
  - PNEUMONIA [None]
  - PAIN [None]
  - ANXIETY [None]
  - PULMONARY INFARCTION [None]
  - CHOLECYSTECTOMY [None]
  - PULMONARY EMBOLISM [None]
  - INJURY [None]
